FAERS Safety Report 4292619-6 (Version None)
Quarter: 2004Q1

REPORT INFORMATION
  Report Type: 
  Country: None (occurrence: None)
  Receive Date: 20040126
  Receipt Date: 20031021
  Transmission Date: 20041129
  Serious: No
  Sender: FDA-Public Use
  Company Number: USA031050457

PATIENT
  Age: 84 Year
  Sex: Female
  Weight: 55 kg

DRUGS (5)
  1. FORTEO [Suspect]
     Indication: OSTEOPOROSIS
     Dates: start: 20030801
  2. PREMARIN [Concomitant]
  3. FOSAMAX [Concomitant]
  4. CALCIUM [Concomitant]
  5. CITRACAL (CALCIUM CITRATE) [Concomitant]

REACTIONS (2)
  - HEART RATE INCREASED [None]
  - OVERDOSE [None]
